FAERS Safety Report 5013869-7 (Version None)
Quarter: 2006Q2

REPORT INFORMATION
  Report Type: 
  Country: None (occurrence: None)
  Receive Date: 20060525
  Receipt Date: 20060512
  Transmission Date: 20061013
  Serious: Yes (Hospitalization)
  Sender: FDA-Public Use
  Company Number: 2006064045

PATIENT
  Age: 1 Year
  Sex: Male

DRUGS (1)
  1. AZITHROMYCIN [Suspect]
     Indication: PHARYNGITIS
     Dosage: 100 MG, ORAL
     Route: 048
     Dates: start: 20060502, end: 20060504

REACTIONS (2)
  - CHROMATURIA [None]
  - HAEMOLYTIC ANAEMIA [None]
